FAERS Safety Report 4841592-8 (Version None)
Quarter: 2005Q4

REPORT INFORMATION
  Report Type: 
  Country: None (occurrence: None)
  Receive Date: 20051130
  Receipt Date: 20050830
  Transmission Date: 20060501
  Serious: No
  Sender: FDA-Public Use
  Company Number: US-GLAXOSMITHKLINE-A0572403A

PATIENT
  Sex: Female

DRUGS (7)
  1. WELLBUTRIN XL [Suspect]
     Indication: DEPRESSION
     Dosage: 150MG PER DAY
     Route: 048
  2. TRANXENE [Concomitant]
  3. GLYBURIDE [Concomitant]
  4. GLUCOPHAGE [Concomitant]
  5. HYZAAR [Concomitant]
  6. TOPROL-XL [Concomitant]
  7. VITAMINS [Concomitant]

REACTIONS (2)
  - FLUID RETENTION [None]
  - WEIGHT INCREASED [None]
